FAERS Safety Report 10144376 (Version 1)
Quarter: 2014Q2

REPORT INFORMATION
  Report Type: Report from Study
  Country: CA (occurrence: CA)
  Receive Date: 20140430
  Receipt Date: 20140430
  Transmission Date: 20141212
  Serious: Yes (Hospitalization)
  Sender: FDA-Public Use
  Company Number: CA-SA-2014SA056448

PATIENT
  Age: 57 Year
  Sex: Female
  Weight: 82 kg

DRUGS (9)
  1. TERIFLUNOMIDE [Suspect]
     Indication: RELAPSING-REMITTING MULTIPLE SCLEROSIS
     Route: 048
  2. DILTIAZEM [Suspect]
     Indication: CORONARY ARTERY DISEASE
     Route: 048
  3. BISOPROLOL [Suspect]
     Indication: CORONARY ARTERY DISEASE
     Route: 048
  4. BACLOFEN [Concomitant]
     Indication: MUSCLE SPASTICITY
     Route: 048
  5. ALL OTHER THERAPEUTIC PRODUCTS [Concomitant]
     Indication: DEPRESSION
     Route: 048
  6. DOMPERIDONE [Concomitant]
     Indication: RESTLESS LEGS SYNDROME
     Route: 048
  7. LORAZEPAM [Concomitant]
     Indication: INSOMNIA
     Route: 048
  8. DESMOPRESSIN [Concomitant]
     Indication: BLADDER DISORDER
     Dosage: SPRAY
     Route: 048
  9. VITAMIN D [Concomitant]
     Indication: NUTRITIONAL SUPPLEMENTATION
     Route: 048

REACTIONS (2)
  - Dehydration [Recovered/Resolved]
  - Bronchopneumonia [Recovered/Resolved]
